FAERS Safety Report 6903889-7 (Version None)
Quarter: 2010Q3

REPORT INFORMATION
  Report Type: 
  Country: None (occurrence: None)
  Receive Date: 20100804
  Receipt Date: 20090127
  Transmission Date: 20110219
  Serious: No
  Sender: FDA-Public Use
  Company Number: US-PFIZER INC-2009162214

PATIENT
  Age: 47 Year
  Sex: Female
  Weight: 68 kg

DRUGS (14)
  1. LYRICA [Suspect]
     Indication: HYPOAESTHESIA
     Dosage: 50 MG, 2X/DAY
     Dates: start: 20090101
  2. LYRICA [Suspect]
     Indication: PARAESTHESIA
  3. TEGRETOL [Concomitant]
  4. FELODIPINE [Concomitant]
  5. MONTELUKAST SODIUM [Concomitant]
  6. AMBIEN [Concomitant]
  7. SIMVASTATIN [Concomitant]
  8. LEVOTHYROXINE [Concomitant]
  9. VITAMIN B-12 [Concomitant]
  10. FISH OIL [Concomitant]
  11. XANAX [Concomitant]
  12. ALBUTEROL [Concomitant]
  13. IMITREX [Concomitant]
  14. QUININE [Concomitant]

REACTIONS (11)
  - CONFUSIONAL STATE [None]
  - CONSTIPATION [None]
  - COORDINATION ABNORMAL [None]
  - DIZZINESS [None]
  - DRUG INEFFECTIVE [None]
  - DRY MOUTH [None]
  - HEADACHE [None]
  - MUSCLE TWITCHING [None]
  - SOMNOLENCE [None]
  - THINKING ABNORMAL [None]
  - VISION BLURRED [None]
